FAERS Safety Report 22078837 (Version 1)
Quarter: 2023Q1

REPORT INFORMATION
  Report Type: Spontaneous
  Country: NL (occurrence: NL)
  Receive Date: 20230309
  Receipt Date: 20230309
  Transmission Date: 20230417
  Serious: Yes (Hospitalization, Other)
  Sender: FDA-Public Use
  Company Number: NL-BoehringerIngelheim-2023-BI-211800

PATIENT
  Age: 85 Year
  Sex: Female

DRUGS (27)
  1. TRANEXAMIC ACID [Suspect]
     Active Substance: TRANEXAMIC ACID
     Indication: Coagulation time prolonged
     Dosage: UNK
  2. TRANEXAMIC ACID [Suspect]
     Active Substance: TRANEXAMIC ACID
     Indication: Haemorrhage
  3. PROTAMINE [Suspect]
     Active Substance: PROTAMINE
     Indication: Coagulation time prolonged
     Dosage: UNK
  4. PROTAMINE [Suspect]
     Active Substance: PROTAMINE
     Indication: Haemorrhage
  5. VITAMIN K [Suspect]
     Active Substance: PHYTONADIONE
     Indication: Haemorrhage
     Dosage: UNK
  6. VITAMIN K [Suspect]
     Active Substance: PHYTONADIONE
     Indication: Coagulation time prolonged
  7. DABIGATRAN [Interacting]
     Active Substance: DABIGATRAN
     Indication: Atrial fibrillation
     Dosage: 110 MILLIGRAM, BID
  8. IDARUCIZUMAB [Interacting]
     Active Substance: IDARUCIZUMAB
     Indication: Haemorrhage
     Dosage: 5 GRAM
  9. IDARUCIZUMAB [Interacting]
     Active Substance: IDARUCIZUMAB
     Dosage: 5 GRAM (REPEAT ADMINISTRATION)
  10. IDARUCIZUMAB [Interacting]
     Active Substance: IDARUCIZUMAB
     Dosage: 2.5 GRAM (REPEAT ADMINISTRATION)
  11. ALISKIREN [Interacting]
     Active Substance: ALISKIREN
     Indication: Product used for unknown indication
     Dosage: 150 MILLIGRAM, QD
  12. AMIODARONE [Interacting]
     Active Substance: AMIODARONE
     Indication: Atrial fibrillation
     Dosage: 200 MILLIGRAM, QD
  13. BISOPROLOL [Interacting]
     Active Substance: BISOPROLOL
     Indication: Product used for unknown indication
     Dosage: 2.5 MILLIGRAM, QD
  14. FUROSEMIDE [Concomitant]
     Active Substance: FUROSEMIDE
     Indication: Product used for unknown indication
     Dosage: 80 MG, 1X/DAY
  15. CEFUROXIME [Concomitant]
     Active Substance: CEFUROXIME
     Indication: Evidence based treatment
     Dosage: 3000 UG, 1X/DAY
  16. ROPINIROLE [Concomitant]
     Active Substance: ROPINIROLE
     Dosage: 2 MG, 1X/DAY
  17. IPRATROPIUM [Concomitant]
     Active Substance: IPRATROPIUM
     Dosage: FREQ:8 H;40 MICROGRAM, Q8H (AEROSOL, THREE TIMES A DAY)
  18. EUTHYROX [Concomitant]
     Active Substance: LEVOTHYROXINE SODIUM
     Dosage: 50 UG, 1X/DAY
  19. THIAMINE [Concomitant]
     Active Substance: THIAMINE
     Dosage: 100 MG, 1X/DAY
  20. ACETAMINOPHEN [Concomitant]
     Active Substance: ACETAMINOPHEN
     Dosage: FREQ:8 H;1000 MILLIGRAM, Q8H (THREE TIMES A DAY)
  21. ALLOPURINOL [Concomitant]
     Active Substance: ALLOPURINOL
     Dosage: 100 MG, 1X/DAY
  22. LORATADINE [Concomitant]
     Active Substance: LORATADINE
     Dosage: 10 MG, 1X/DAY
  23. HEPARIN CALCIUM [Concomitant]
     Active Substance: HEPARIN CALCIUM
     Indication: Atrial fibrillation
     Dosage: UNK
  24. ASCORBIC ACID [Concomitant]
     Active Substance: ASCORBIC ACID
     Dosage: 500 MG, 1X/DAY
  25. BECLOMETHASONE\FENOTEROL [Concomitant]
     Active Substance: BECLOMETHASONE\FENOTEROL
     Dosage: 100/6 MCG (BID)
  26. GENTAMICIN [Concomitant]
     Active Substance: GENTAMICIN
     Indication: Evidence based treatment
     Dosage: 7 MILLIGRAM PER KILOGRAM QD
  27. CHOLECALCIFEROL [Concomitant]
     Active Substance: CHOLECALCIFEROL
     Dosage: 800 IU, 1X/DAY

REACTIONS (9)
  - Drug ineffective [Unknown]
  - Overdose [Unknown]
  - Sepsis [Not Recovered/Not Resolved]
  - Acute kidney injury [Unknown]
  - Haemorrhage [Unknown]
  - Drug interaction [Unknown]
  - Coagulation time prolonged [Unknown]
  - Rebound effect [Unknown]
  - Haematoma [Unknown]
